FAERS Safety Report 7962530-5 (Version None)
Quarter: 2011Q4

REPORT INFORMATION
  Report Type: 
  Country: None (occurrence: None)
  Receive Date: 20111207
  Receipt Date: 20111201
  Transmission Date: 20120403
  Serious: Yes (Hospitalization)
  Sender: FDA-Public Use
  Company Number: FR-GLAXOSMITHKLINE-B0754190A

PATIENT
  Sex: Male
  Weight: 74 kg

DRUGS (3)
  1. DEPAKOTE [Concomitant]
     Route: 065
  2. LAMICTAL [Suspect]
     Indication: BIPOLAR DISORDER
     Route: 048
     Dates: start: 20110901, end: 20111004
  3. MIRTAZAPINE [Concomitant]
     Route: 065

REACTIONS (9)
  - INCORRECT DOSE ADMINISTERED [None]
  - TOXIC SKIN ERUPTION [None]
  - SKIN LESION [None]
  - RASH MACULO-PAPULAR [None]
  - ERYTHEMA MULTIFORME [None]
  - INFLAMMATION [None]
  - PYREXIA [None]
  - PURPURA [None]
  - CONJUNCTIVITIS [None]
